FAERS Safety Report 15206500 (Version 3)
Quarter: 2018Q4

REPORT INFORMATION
  Report Type: Spontaneous
  Country: US (occurrence: US)
  Receive Date: 20180727
  Receipt Date: 20181126
  Transmission Date: 20190204
  Serious: No
  Sender: FDA-Public Use
  Company Number: US-PFIZER INC-2018303599

PATIENT
  Age: 63 Year
  Sex: Female

DRUGS (23)
  1. ATIVAN [Suspect]
     Active Substance: LORAZEPAM
     Dosage: UNK
  2. BACTRIM [Suspect]
     Active Substance: SULFAMETHOXAZOLE\TRIMETHOPRIM
     Dosage: UNK
  3. AMBIEN [Suspect]
     Active Substance: ZOLPIDEM TARTRATE
     Dosage: UNK
  4. LITHIUM. [Suspect]
     Active Substance: LITHIUM
     Dosage: UNK
  5. SEROQUEL [Suspect]
     Active Substance: QUETIAPINE FUMARATE
     Dosage: UNK
  6. ERYTHROMYCIN. [Suspect]
     Active Substance: ERYTHROMYCIN
     Dosage: UNK
  7. EFFEXOR XR [Suspect]
     Active Substance: VENLAFAXINE HYDROCHLORIDE
     Dosage: UNK
  8. MORPHINE SULFATE. [Suspect]
     Active Substance: MORPHINE SULFATE
     Dosage: UNK
  9. KEFLEX [Suspect]
     Active Substance: CEPHALEXIN
     Dosage: UNK
  10. LOXITANE [LOXAPINE HYDROCHLORIDE] [Suspect]
     Active Substance: LOXAPINE HYDROCHLORIDE
     Dosage: UNK
  11. ARTICAINE [Suspect]
     Active Substance: ARTICAINE
     Dosage: UNK
  12. PRILOSEC [Suspect]
     Active Substance: OMEPRAZOLE MAGNESIUM
     Dosage: UNK
  13. BENADRYL [Suspect]
     Active Substance: DIPHENHYDRAMINE HYDROCHLORIDE
     Dosage: UNK
  14. MOBIC [Suspect]
     Active Substance: MELOXICAM
     Dosage: UNK
  15. XANAX [Suspect]
     Active Substance: ALPRAZOLAM
     Dosage: UNK
  16. ASPIRIN. [Suspect]
     Active Substance: ASPIRIN
     Dosage: UNK
  17. CORTISONE [Suspect]
     Active Substance: CORTISONE\HYDROCORTISONE
     Dosage: UNK
  18. HALDOL [Suspect]
     Active Substance: HALOPERIDOL
     Dosage: UNK
  19. IMIPRAMINE [Suspect]
     Active Substance: IMIPRAMINE
     Dosage: UNK
  20. PROLINE [Suspect]
     Active Substance: PROLINE
     Dosage: UNK
  21. COGENTIN [Suspect]
     Active Substance: BENZTROPINE MESYLATE
     Dosage: UNK
  22. MONISTAT 7 [Suspect]
     Active Substance: MICONAZOLE NITRATE
     Dosage: UNK
  23. RELAFEN [Suspect]
     Active Substance: NABUMETONE
     Dosage: UNK

REACTIONS (1)
  - Drug hypersensitivity [Unknown]
